FAERS Safety Report 19864697 (Version 1)
Quarter: 2021Q3

REPORT INFORMATION
  Report Type: Spontaneous
  Country: US (occurrence: US)
  Receive Date: 20210922
  Receipt Date: 20210922
  Transmission Date: 20211014
  Serious: Yes (Other)
  Sender: FDA-Public Use
  Company Number: US-SUN PHARMACEUTICAL INDUSTRIES LTD-2021R1-311900

PATIENT
  Age: 60 Year
  Sex: Male

DRUGS (3)
  1. BUPIVACAINE. [Suspect]
     Active Substance: BUPIVACAINE
     Indication: NECK PAIN
     Dosage: UNK
     Route: 037
  2. BACLOFEN. [Suspect]
     Active Substance: BACLOFEN
     Indication: NECK PAIN
     Dosage: UNK
     Route: 037
  3. MORPHINE [Suspect]
     Active Substance: MORPHINE
     Indication: NECK PAIN
     Dosage: UNK
     Route: 037

REACTIONS (3)
  - Cervical spinal stenosis [Recovered/Resolved]
  - Cervical cord compression [Recovered/Resolved]
  - Fall [Unknown]
